FAERS Safety Report 9462597 (Version 1)
Quarter: 2013Q3

REPORT INFORMATION
  Report Type: Report from Study
  Country: US (occurrence: US)
  Receive Date: 20130816
  Receipt Date: 20130816
  Transmission Date: 20140515
  Serious: Yes (Other)
  Sender: FDA-Public Use
  Company Number: US-ABBOTT-13P-163-1130663-00

PATIENT
  Age: 59 Year
  Sex: Male
  Weight: 89.44 kg

DRUGS (3)
  1. HUMIRA [Suspect]
     Indication: CROHN^S DISEASE
     Dates: start: 2010, end: 201206
  2. NORVASC [Concomitant]
     Indication: PRODUCT USED FOR UNKNOWN INDICATION
     Dates: start: 1983, end: 201307
  3. TERAZOSIN [Concomitant]
     Indication: PRODUCT USED FOR UNKNOWN INDICATION
     Dates: start: 1983, end: 201307

REACTIONS (3)
  - Renal failure [Not Recovered/Not Resolved]
  - Hypotension [Recovered/Resolved]
  - Hypertension [Recovered/Resolved]
